FAERS Safety Report 7492627-8 (Version None)
Quarter: 2011Q2

REPORT INFORMATION
  Report Type: 
  Country: None (occurrence: None)
  Receive Date: 20110519
  Receipt Date: 20110516
  Transmission Date: 20111010
  Serious: Yes (Hospitalization)
  Sender: FDA-Public Use
  Company Number: US-ELI_LILLY_AND_COMPANY-US201103008654

PATIENT
  Sex: Female
  Weight: 85.261 kg

DRUGS (6)
  1. DUONEB [Concomitant]
  2. ADCIRCA [Suspect]
     Dosage: 40 MG, QD
     Route: 048
  3. TOPROL-XL [Concomitant]
  4. ADVAIR DISKUS 100/50 [Concomitant]
  5. FLONASE [Concomitant]
  6. PROTONIX [Concomitant]

REACTIONS (1)
  - PNEUMONIA [None]
